FAERS Safety Report 7223076-5 (Version None)
Quarter: 2011Q1

REPORT INFORMATION
  Report Type: 
  Country: None (occurrence: None)
  Receive Date: 20110112
  Receipt Date: 20100104
  Transmission Date: 20110831
  Serious: No
  Sender: FDA-Public Use
  Company Number: US-ALLERGAN-1000028US

PATIENT
  Sex: Female

DRUGS (4)
  1. CLEAN [Concomitant]
  2. RESTASIS [Suspect]
     Indication: DRY EYE
     Dosage: UNK
     Route: 047
  3. OPTIVE [Concomitant]
  4. BLINK [Concomitant]

REACTIONS (1)
  - EYE PAIN [None]
